FAERS Safety Report 6959080-1 (Version None)
Quarter: 2010Q3

REPORT INFORMATION
  Report Type: 
  Country: None (occurrence: None)
  Receive Date: 20100831
  Receipt Date: 20100823
  Transmission Date: 20110219
  Serious: Yes (Hospitalization)
  Sender: FDA-Public Use
  Company Number: NL-TEVA-246252ISR

PATIENT
  Age: 48 Year
  Sex: Female

DRUGS (5)
  1. CYCLOSPORINE [Suspect]
     Indication: APLASTIC ANAEMIA
  2. ANTI-THYMOCYTE GLOBULIN NOS [Concomitant]
  3. PREDNISOLONE [Concomitant]
  4. CIPROFLOXACIN [Concomitant]
  5. FLUCONAZOLE [Concomitant]

REACTIONS (1)
  - CEREBROVASCULAR SPASM [None]
